FAERS Safety Report 14165714 (Version 2)
Quarter: 2018Q1

REPORT INFORMATION
  Report Type: Report from Study
  Country: JP (occurrence: JP)
  Receive Date: 20171107
  Receipt Date: 20180103
  Transmission Date: 20180508
  Serious: No
  Sender: FDA-Public Use
  Company Number: JP-VIFOR (INTERNATIONAL) INC.-VIT-2017-11971

PATIENT
  Sex: Male
  Weight: 56 kg

DRUGS (18)
  1. FEBURIC [Concomitant]
     Active Substance: FEBUXOSTAT
     Route: 048
  2. CRESTOR [Concomitant]
     Active Substance: ROSUVASTATIN CALCIUM
     Route: 048
  3. CLENAFIN [Concomitant]
     Active Substance: EFINACONAZOLE
     Route: 050
     Dates: start: 20160924, end: 20161130
  4. AMLODIPINE BESILATE [Concomitant]
     Active Substance: AMLODIPINE BESYLATE
     Route: 048
     Dates: end: 20161029
  5. DOXAZOSIN MESILATE [Concomitant]
     Active Substance: DOXAZOSIN MESYLATE
     Route: 048
     Dates: end: 20161029
  6. ALOSENN [Concomitant]
     Active Substance: SENNA LEAF
     Route: 048
  7. EPOGIN [Concomitant]
     Active Substance: ERYTHROPOIETIN
     Dates: end: 20161115
  8. VELPHORO [Suspect]
     Active Substance: FERRIC OXYHYDROXIDE
     Indication: HYPERPHOSPHATAEMIA
     Route: 048
     Dates: start: 20160915, end: 20170620
  9. VELPHORO [Suspect]
     Active Substance: FERRIC OXYHYDROXIDE
     Indication: CHRONIC KIDNEY DISEASE
  10. NEXIUM [Concomitant]
     Active Substance: ESOMEPRAZOLE MAGNESIUM
     Route: 048
  11. SODIUM PICOSULFATE [Concomitant]
     Active Substance: SODIUM PICOSULFATE
     Route: 048
     Dates: start: 20161201
  12. ZOLPIDEM TARTRATE. [Concomitant]
     Active Substance: ZOLPIDEM TARTRATE
     Route: 048
  13. FUROSEMIDE. [Concomitant]
     Active Substance: FUROSEMIDE
     Route: 048
  14. ETIZOLAM [Concomitant]
     Active Substance: ETIZOLAM
     Route: 048
  15. EPOGIN [Concomitant]
     Active Substance: ERYTHROPOIETIN
     Dates: start: 20161117
  16. HEPARIN SODIUM. [Concomitant]
     Active Substance: HEPARIN SODIUM
     Indication: HAEMODIALYSIS
  17. CLOTIAZEPAM [Concomitant]
     Active Substance: CLOTIAZEPAM
     Route: 048
  18. SENNOSIDE A+B CALCIUM [Concomitant]
     Active Substance: SENNOSIDES A AND B
     Route: 048
     Dates: start: 20161006, end: 20161029

REACTIONS (6)
  - Pharyngitis [Recovered/Resolved]
  - Rhinitis allergic [Recovering/Resolving]
  - Dysgeusia [Recovered/Resolved]
  - Eczema [Recovered/Resolved]
  - Back pain [Recovered/Resolved]
  - Chronic sinusitis [Recovered/Resolved]

NARRATIVE: CASE EVENT DATE: 20161020
